FAERS Safety Report 16509751 (Version 2)
Quarter: 2019Q3

REPORT INFORMATION
  Report Type: Spontaneous
  Country: US (occurrence: US)
  Receive Date: 20190702
  Receipt Date: 20190706
  Transmission Date: 20191004
  Serious: No
  Sender: FDA-Public Use
  Company Number: US-JNJFOC-20190637938

PATIENT
  Sex: Female
  Weight: 49.03 kg

DRUGS (1)
  1. WOMENS ROGAINE [Suspect]
     Active Substance: MINOXIDIL
     Indication: ALOPECIA
     Dosage: TO THE LINE ON THE DROPPER
     Route: 061
     Dates: start: 201811, end: 201902

REACTIONS (2)
  - Application site dryness [Recovered/Resolved]
  - Drug ineffective [Unknown]
